FAERS Safety Report 5722114-6 (Version None)
Quarter: 2008Q2

REPORT INFORMATION
  Report Type: 
  Country: None (occurrence: None)
  Receive Date: 20080429
  Receipt Date: 20080422
  Transmission Date: 20081010
  Serious: Yes (Other)
  Sender: FDA-Public Use
  Company Number: US-ELI_LILLY_AND_COMPANY-US200804001308

PATIENT
  Sex: Female
  Weight: 120.18 kg

DRUGS (9)
  1. BYETTA [Suspect]
     Indication: TYPE 2 DIABETES MELLITUS
     Dosage: 5 UG, 2/D
     Route: 058
     Dates: start: 20080101, end: 20080201
  2. BYETTA [Suspect]
     Dosage: 10 UG, 2/D
     Route: 058
     Dates: start: 20080201, end: 20080331
  3. PRANDIN /USA/ [Concomitant]
     Indication: DIABETES MELLITUS
     Dosage: 2 MG, 3/D
  4. LANTUS [Concomitant]
     Indication: DIABETES MELLITUS
     Dosage: 26 U, EACH EVENING
  5. ASPIRIN [Concomitant]
     Dosage: 81 MG, UNK
  6. TORSEMIDE [Concomitant]
     Dosage: 20 MG, DAILY (1/D)
  7. DIOVAN [Concomitant]
     Dosage: 160 MG, DAILY (1/D)
  8. IRON [Concomitant]
  9. DILTIAZEM [Concomitant]
     Dosage: 180 MG, 3/D

REACTIONS (6)
  - BLOOD CREATININE INCREASED [None]
  - CHILLS [None]
  - DEHYDRATION [None]
  - DIZZINESS [None]
  - LOSS OF CONSCIOUSNESS [None]
  - NERVOUSNESS [None]
